FAERS Safety Report 18256372 (Version 3)
Quarter: 2020Q4

REPORT INFORMATION
  Report Type: Report from Study
  Country: None (occurrence: CA)
  Receive Date: 20200911
  Receipt Date: 20201012
  Transmission Date: 20210113
  Serious: Yes (Hospitalization, Other)
  Sender: FDA-Public Use
  Company Number: CA-ABBVIE-20K-028-3550530-00

PATIENT
  Age: 43 Year
  Sex: Female
  Weight: 122.13 kg

DRUGS (2)
  1. HUMIRA [Suspect]
     Active Substance: ADALIMUMAB
     Route: 058
     Dates: start: 20200831, end: 20200912
  2. HUMIRA [Suspect]
     Active Substance: ADALIMUMAB
     Indication: HIDRADENITIS
     Route: 058
     Dates: start: 20200817, end: 20200817

REACTIONS (10)
  - Haemorrhage [Recovering/Resolving]
  - Surgery [Recovering/Resolving]
  - Infection [Recovering/Resolving]
  - Pain [Unknown]
  - Abscess [Recovering/Resolving]
  - Illness [Not Recovered/Not Resolved]
  - Skin lesion [Not Recovered/Not Resolved]
  - Discharge [Recovering/Resolving]
  - Nausea [Not Recovered/Not Resolved]
  - Unevaluable event [Not Recovered/Not Resolved]

NARRATIVE: CASE EVENT DATE: 2020
